FAERS Safety Report 22620351 (Version 2)
Quarter: 2023Q2

REPORT INFORMATION
  Report Type: Report from Study
  Country: BR (occurrence: None)
  Receive Date: 20230620
  Receipt Date: 20230621
  Transmission Date: 20230722
  Serious: Yes (Hospitalization)
  Sender: FDA-Public Use
  Company Number: 2023A140008

PATIENT
  Age: 66 Year
  Sex: Male

DRUGS (9)
  1. DURVALUMAB [Suspect]
     Active Substance: DURVALUMAB
     Indication: Bladder cancer
     Route: 042
     Dates: start: 20230519, end: 20230519
  2. TREMELIMUMAB [Suspect]
     Active Substance: TREMELIMUMAB
     Indication: Bladder cancer
     Dosage: 75.0MG ONCE/SINGLE ADMINISTRATION
     Route: 042
     Dates: start: 20230519, end: 20230519
  3. ENFORTUMAB VEDOTIN [Suspect]
     Active Substance: ENFORTUMAB VEDOTIN
     Indication: Bladder cancer
     Dosage: 1.25MG/KG ONCE/SINGLE ADMINISTRATION
     Route: 042
     Dates: start: 20230519, end: 20230519
  4. ENFORTUMAB VEDOTIN [Suspect]
     Active Substance: ENFORTUMAB VEDOTIN
     Indication: Bladder cancer
     Dosage: 1.25MG/KG ONCE/SINGLE ADMINISTRATION
     Route: 042
     Dates: start: 20230525, end: 20230525
  5. FORMOTEROL [Concomitant]
     Active Substance: FORMOTEROL
     Indication: Emphysema
     Dates: start: 2021
  6. BUDESONIDE [Concomitant]
     Active Substance: BUDESONIDE
     Indication: Emphysema
     Dates: start: 2021
  7. OLODATEROL [Concomitant]
     Active Substance: OLODATEROL
     Indication: Emphysema
     Dates: start: 2021
  8. DUTASTERIDE\TAMSULOSIN [Concomitant]
     Active Substance: DUTASTERIDE\TAMSULOSIN
     Indication: Benign prostatic hyperplasia
     Dates: start: 2019
  9. TANSULOSINA [Concomitant]
     Indication: Benign prostatic hyperplasia
     Dates: start: 2019

REACTIONS (1)
  - Urinary tract infection [Recovering/Resolving]

NARRATIVE: CASE EVENT DATE: 20230611
